FAERS Safety Report 4633961-6 (Version None)
Quarter: 2005Q2

REPORT INFORMATION
  Report Type: 
  Country: None (occurrence: None)
  Receive Date: 20050412
  Receipt Date: 20050412
  Transmission Date: 20051028
  Serious: No
  Sender: FDA-Public Use
  Company Number: None

PATIENT
  Age: 49 Year
  Sex: Male
  Weight: 90.7194 kg

DRUGS (1)
  1. PEPSODENT ANTICAVITY FLUROIDE TOOTHPASTE- ORIGINAL;MINT FLAVOR; 6OZ ; [Suspect]

REACTIONS (6)
  - DYSGEUSIA [None]
  - GASTROINTESTINAL DISORDER [None]
  - HEADACHE [None]
  - NAUSEA [None]
  - PHARMACEUTICAL PRODUCT COMPLAINT [None]
  - VOMITING [None]
